FAERS Safety Report 4598800-0 (Version None)
Quarter: 2005Q1

REPORT INFORMATION
  Report Type: 
  Country: None (occurrence: None)
  Receive Date: 20050201
  Receipt Date: 20050201
  Transmission Date: 20050727
  Serious: Yes (Hospitalization)
  Sender: FDA-Public Use
  Company Number: None

PATIENT
  Sex: Male

DRUGS (10)
  1. OLANZAPINE [Suspect]
     Indication: MAJOR DEPRESSION
     Dosage: 7.5 MG HS ORAL
     Route: 048
  2. CARBIDOPA AND LEVODOPA [Suspect]
     Indication: PARKINSON'S DISEASE
     Dosage: 25/100 QID ORAL
     Route: 048
  3. APAP TAB [Concomitant]
  4. ALENDRONATE SODIUM [Concomitant]
  5. ASPIRIN [Concomitant]
  6. CALCIUM /VIT D [Concomitant]
  7. DOCUATE [Concomitant]
  8. MULTIITAMIN WITH MINERALS [Concomitant]
  9. OMEPRAZOLE [Concomitant]
  10. PAROXETINE HCL [Concomitant]

REACTIONS (2)
  - FALL [None]
  - HYPOTENSION [None]
